FAERS Safety Report 7177232-5 (Version None)
Quarter: 2010Q4

REPORT INFORMATION
  Report Type: 
  Country: None (occurrence: None)
  Receive Date: 20101215
  Receipt Date: 20101215
  Transmission Date: 20110411
  Serious: Yes (Hospitalization)
  Sender: FDA-Public Use
  Company Number: None

PATIENT
  Sex: Female
  Weight: 60.54 kg

DRUGS (7)
  1. CARBOPLATIN [Suspect]
     Dosage: 542 MG
     Dates: end: 20101116
  2. ERBITUX [Suspect]
     Dosage: 670 MG
     Dates: end: 20101116
  3. TAXOL [Suspect]
     Dosage: 336 MG
     Dates: end: 20101116
  4. DEXAMETHASONE [Concomitant]
  5. ATIVAN [Concomitant]
  6. NEULASTA [Concomitant]
  7. PHENERGAN [Concomitant]

REACTIONS (5)
  - ASPARTATE AMINOTRANSFERASE INCREASED [None]
  - BLOOD BILIRUBIN INCREASED [None]
  - FEBRILE NEUTROPENIA [None]
  - NAUSEA [None]
  - WHITE BLOOD CELL COUNT DECREASED [None]
